FAERS Safety Report 8943522 (Version 1)
Quarter: 2012Q4

REPORT INFORMATION
  Report Type: 
  Country: IT (occurrence: IT)
  Receive Date: 20121203
  Receipt Date: 20121203
  Transmission Date: 20130627
  Serious: Yes (Other)
  Sender: FDA-Public Use
  Company Number: PHHY2012IT110197

PATIENT
  Age: 61 Year
  Sex: Female

DRUGS (1)
  1. AMOXICILLIN [Suspect]
     Indication: TOOTHACHE
     Dosage: 1 g, UNK
     Route: 048
     Dates: start: 20120721, end: 20120721

REACTIONS (5)
  - Malaise [Recovering/Resolving]
  - Pallor [Recovering/Resolving]
  - Asthenia [Recovering/Resolving]
  - Face oedema [Recovering/Resolving]
  - Erythema [Recovering/Resolving]
